FAERS Safety Report 20663249 (Version 1)
Quarter: 2022Q1

REPORT INFORMATION
  Report Type: Spontaneous
  Country: US (occurrence: None)
  Receive Date: 20220331
  Receipt Date: 20220331
  Transmission Date: 20220423
  Serious: Yes (Death)
  Sender: FDA-Public Use
  Company Number: None

PATIENT
  Age: 64 Year
  Sex: Male
  Weight: 84.9 kg

DRUGS (1)
  1. ANDEXANET ALFA [Suspect]
     Active Substance: ANDEXANET ALFA
     Indication: Procoagulant therapy
     Dates: start: 20220322

REACTIONS (9)
  - Graft thrombosis [None]
  - Peripheral artery occlusion [None]
  - Peripheral ischaemia [None]
  - Rhabdomyolysis [None]
  - Acute kidney injury [None]
  - Metabolic acidosis [None]
  - Blood lactic acid increased [None]
  - Heart rate increased [None]
  - Craniocerebral injury [None]

NARRATIVE: CASE EVENT DATE: 20220325
